FAERS Safety Report 17641532 (Version 2)
Quarter: 2020Q2

REPORT INFORMATION
  Report Type: Spontaneous
  Country: DE (occurrence: DE)
  Receive Date: 20200407
  Receipt Date: 20200410
  Transmission Date: 20200713
  Serious: No
  Sender: FDA-Public Use
  Company Number: DE-ASCEND THERAPEUTICS US, LLC-2082451

PATIENT
  Age: 4 Year
  Sex: Female

DRUGS (2)
  1. ESTRADIOL HEMIHYDRATE (ESTRADIOL HEMIHYDRATE) [Suspect]
     Active Substance: ESTRADIOL HEMIHYDRATE
  2. ESTROGEL [Suspect]
     Active Substance: ESTRADIOL
     Indication: PRODUCT USED FOR UNKNOWN INDICATION

REACTIONS (3)
  - Exposure via skin contact [Unknown]
  - Breast enlargement [Recovering/Resolving]
  - Pseudoprecocious puberty [Recovering/Resolving]
